FAERS Safety Report 10274603 (Version 1)
Quarter: 2014Q3

REPORT INFORMATION
  Report Type: Report from Study
  Country: BR (occurrence: BR)
  Receive Date: 20140702
  Receipt Date: 20140702
  Transmission Date: 20150326
  Serious: Yes (Other)
  Sender: FDA-Public Use
  Company Number: PHHY2014BR081412

PATIENT
  Age: 84 Year
  Sex: Female
  Weight: 47 kg

DRUGS (5)
  1. ACLASTA [Suspect]
     Active Substance: ZOLEDRONIC ACID
     Indication: OSTEOPOROSIS
     Dosage: UNK UKN, ONCE PER YEAR
     Route: 042
     Dates: start: 201401
  2. METFORMIN [Concomitant]
     Active Substance: METFORMIN HYDROCHLORIDE
     Indication: DIABETES MELLITUS
     Dosage: 1 DF, DAILY
     Route: 048
     Dates: start: 2010
  3. AAS [Concomitant]
     Active Substance: ASPIRIN
     Dosage: 1 DF, DAILY
     Route: 048
     Dates: start: 2010
  4. GLIBENCLAMIDE [Concomitant]
     Active Substance: GLYBURIDE
     Indication: DIABETES MELLITUS
     Dosage: 1 DF (TABLET IN FAST), DAILY
     Route: 048
     Dates: start: 2010
  5. LOSARTAN [Concomitant]
     Active Substance: LOSARTAN
     Indication: HYPERTENSION
     Dosage: 2 DF, DAILY
     Route: 048
     Dates: start: 2011

REACTIONS (2)
  - Wound necrosis [Recovered/Resolved]
  - Laceration [Recovered/Resolved]

NARRATIVE: CASE EVENT DATE: 20140404
